FAERS Safety Report 4941834-4 (Version None)
Quarter: 2006Q1

REPORT INFORMATION
  Report Type: 
  Country: None (occurrence: None)
  Receive Date: 20060307
  Receipt Date: 20060228
  Transmission Date: 20060701
  Serious: Yes (Other)
  Sender: FDA-Public Use
  Company Number: HQWYE134603MAR06

PATIENT
  Age: 21 Year
  Sex: Female
  Weight: 56.75 kg

DRUGS (2)
  1. ADVIL [Suspect]
     Indication: HEADACHE
     Dosage: 1 LIQUI-GEL ONCE, ORAL
     Route: 048
     Dates: start: 20040101, end: 20040101
  2. MIRCETTE [Concomitant]

REACTIONS (3)
  - PRURITUS [None]
  - TREMOR [None]
  - VOMITING [None]
